FAERS Safety Report 24278756 (Version 1)
Quarter: 2024Q3

REPORT INFORMATION
  Report Type: Report from Study
  Country: DE (occurrence: DE)
  Receive Date: 20240903
  Receipt Date: 20240903
  Transmission Date: 20241017
  Serious: Yes (Other)
  Sender: PFIZER
  Company Number: DE-PFM-2024-04750

PATIENT
  Age: 82 Year
  Sex: Male

DRUGS (30)
  1. ENCORAFENIB [Suspect]
     Active Substance: ENCORAFENIB
     Indication: Malignant melanoma
     Dosage: 450 MG, QD (1/DAY)
     Route: 048
     Dates: start: 20200824, end: 20210201
  2. ENCORAFENIB [Suspect]
     Active Substance: ENCORAFENIB
     Dosage: 450 MG, QD (1/DAY)
     Route: 048
     Dates: start: 20210210, end: 20240822
  3. BINIMETINIB [Suspect]
     Active Substance: BINIMETINIB
     Indication: Malignant melanoma
     Dosage: 45 MG, BID (2/DAY)
     Route: 048
     Dates: start: 20200824, end: 20210201
  4. BINIMETINIB [Suspect]
     Active Substance: BINIMETINIB
     Dosage: 45 MG, BID (2/DAY)
     Route: 048
     Dates: start: 20210210, end: 20240822
  5. EDOXABAN TOSYLATE [Concomitant]
     Active Substance: EDOXABAN TOSYLATE
     Dosage: UNK
     Route: 065
  6. PROPAFENONE [Concomitant]
     Active Substance: PROPAFENONE
     Dosage: UNK
     Route: 065
  7. VALSARTAN [Concomitant]
     Active Substance: VALSARTAN
     Dosage: UNK
     Route: 065
  8. METOPROLOL [Concomitant]
     Active Substance: METOPROLOL
     Dosage: UNK
     Route: 065
     Dates: end: 20230727
  9. AMLODIPINE [Concomitant]
     Active Substance: AMLODIPINE BESYLATE
     Dosage: UNK
     Route: 065
  10. SIMVASTATIN [Concomitant]
     Active Substance: SIMVASTATIN
     Dosage: UNK
     Route: 065
  11. MAGNESIUMCITRAT [Concomitant]
     Indication: Prophylaxis
     Dosage: UNK
     Route: 065
  12. PANTOPRAZOLE SODIUM [Concomitant]
     Active Substance: PANTOPRAZOLE SODIUM
     Indication: Prophylaxis
     Dosage: UNK
     Route: 065
  13. TAMSULOSIN [Concomitant]
     Active Substance: TAMSULOSIN
     Dosage: UNK
     Route: 065
  14. CHOLECALCIFEROL [Concomitant]
     Active Substance: CHOLECALCIFEROL
     Indication: Prophylaxis
     Dosage: UNK
     Route: 065
     Dates: start: 20210206
  15. CEFAZOLIN [Concomitant]
     Active Substance: CEFAZOLIN
     Indication: Prophylaxis
     Dosage: UNK
     Route: 065
     Dates: start: 20210716, end: 20210716
  16. KELTICAN FORTE [Concomitant]
     Indication: Prophylaxis
     Dosage: UNK
     Route: 065
  17. CEFPODOXIME PROXETIL [Concomitant]
     Active Substance: CEFPODOXIME PROXETIL
     Indication: Renal failure
     Dosage: UNK
     Route: 065
     Dates: start: 20230620, end: 20230622
  18. CEFTRIAXONE [Concomitant]
     Active Substance: CEFTRIAXONE\CEFTRIAXONE SODIUM
     Indication: Renal failure
     Dosage: UNK
     Route: 065
     Dates: start: 20230623, end: 20230628
  19. AMDINOCILLIN PIVOXIL [Concomitant]
     Active Substance: AMDINOCILLIN PIVOXIL
     Indication: Renal failure
     Dosage: UNK
     Route: 065
     Dates: start: 20230710, end: 20230713
  20. PIPERACILLIN AND TAZOBACTAM [Concomitant]
     Active Substance: PIPERACILLIN SODIUM\TAZOBACTAM SODIUM
     Indication: Renal failure
     Dosage: UNK
     Route: 065
     Dates: start: 20230714, end: 20230722
  21. METHIONINE [Concomitant]
     Active Substance: METHIONINE
     Indication: Renal failure
     Dosage: UNK
     Route: 065
     Dates: start: 20230711
  22. BISOPROLOL [Concomitant]
     Active Substance: BISOPROLOL\BISOPROLOL FUMARATE
     Indication: Atrial fibrillation
     Dosage: UNK
     Route: 065
     Dates: start: 20230706
  23. EMPAGLIFLOZIN [Concomitant]
     Active Substance: EMPAGLIFLOZIN
     Dosage: UNK
     Route: 065
  24. FOLIC ACID [Concomitant]
     Active Substance: FOLIC ACID
     Indication: Prophylaxis
     Dosage: UNK
     Route: 065
     Dates: start: 20230705
  25. TORSEMIDE [Concomitant]
     Active Substance: TORSEMIDE
     Dosage: UNK
     Route: 065
  26. SPIRONOLACTONE [Concomitant]
     Active Substance: SPIRONOLACTONE
     Dosage: UNK
     Route: 065
  27. AMOXICILLIN [Concomitant]
     Active Substance: AMOXICILLIN
     Indication: Erysipelas
     Dosage: UNK
     Route: 065
     Dates: start: 20240330, end: 20240408
  28. CEFUROXIME [Concomitant]
     Active Substance: CEFUROXIME
     Indication: Anticoagulant therapy
     Dosage: UNK
     Route: 065
     Dates: start: 20240122, end: 20240129
  29. BICALUTAMIDE [Concomitant]
     Active Substance: BICALUTAMIDE
     Indication: Anticoagulant therapy
     Dosage: UNK
     Route: 065
     Dates: start: 20240122
  30. FRAGMIN [Concomitant]
     Active Substance: DALTEPARIN SODIUM
     Indication: Anticoagulant therapy
     Dosage: UNK
     Route: 065
     Dates: start: 20240122, end: 20240131

REACTIONS (1)
  - Left ventricular dysfunction [Not Recovered/Not Resolved]

NARRATIVE: CASE EVENT DATE: 20240516
